FAERS Safety Report 21435603 (Version 2)
Quarter: 2022Q4

REPORT INFORMATION
  Report Type: Spontaneous
  Country: US (occurrence: US)
  Receive Date: 20221010
  Receipt Date: 20221102
  Transmission Date: 20230112
  Serious: Yes (Other)
  Sender: FDA-Public Use
  Company Number: US-PFIZER INC-2019180965

PATIENT
  Age: 72 Year
  Sex: Female
  Weight: 58.97 kg

DRUGS (8)
  1. PREMARIN [Suspect]
     Active Substance: ESTROGENS, CONJUGATED
     Indication: Atrophic vulvovaginitis
     Dosage: 1 G (INSERT 1 GM, 3 TIMES PER WEEK)
     Route: 067
     Dates: start: 20220620, end: 20220620
  2. PREMARIN [Suspect]
     Active Substance: ESTROGENS, CONJUGATED
     Indication: Vulvovaginal dryness
     Dosage: 42.5 G, 2X/WEEK
     Route: 067
  3. PREMARIN [Suspect]
     Active Substance: ESTROGENS, CONJUGATED
     Dosage: 1.5 G, THREE TIMES A WEEK
     Route: 067
  4. PREMARIN [Suspect]
     Active Substance: ESTROGENS, CONJUGATED
     Dosage: UNK
     Route: 067
  5. PREMARIN [Suspect]
     Active Substance: ESTROGENS, CONJUGATED
     Dosage: 1 G, DAILY
     Route: 067
  6. PREMARIN [Suspect]
     Active Substance: ESTROGENS, CONJUGATED
     Dosage: 1 G, TWO TO THREE TIMES A WEEK
     Route: 067
  7. CLONIXIN LYSINE [Concomitant]
     Active Substance: CLONIXIN LYSINE
     Dosage: 800 MG, 3X/DAY
  8. CELEBREX [Concomitant]
     Active Substance: CELECOXIB
     Dosage: 200 MG, 2X/DAY

REACTIONS (4)
  - Knee arthroplasty [Unknown]
  - Off label use [Unknown]
  - Product use issue [Unknown]
  - Product prescribing error [Unknown]
